FAERS Safety Report 6904185-4 (Version None)
Quarter: 2010Q3

REPORT INFORMATION
  Report Type: 
  Country: None (occurrence: None)
  Receive Date: 20100804
  Receipt Date: 20090403
  Transmission Date: 20110219
  Serious: No
  Sender: FDA-Public Use
  Company Number: US-PFIZER INC-2009168865

PATIENT
  Sex: Female
  Weight: 86.2 kg

DRUGS (8)
  1. LYRICA [Suspect]
     Indication: PAIN
     Dosage: 50 MG, 3X/DAY
     Dates: start: 20080101
  2. ROBAXIN [Concomitant]
     Dosage: UNK
  3. ALL OTHER THERAPEUTIC PRODUCTS [Concomitant]
     Dosage: UNK
  4. CELECOXIB [Concomitant]
     Dosage: UNK
  5. GLUCOPHAGE [Concomitant]
     Indication: DIABETES MELLITUS
     Dosage: UNK
  6. MONTELUKAST SODIUM [Concomitant]
     Dosage: UNK
  7. NASACORT [Concomitant]
     Dosage: UNK
  8. DRUG, UNSPECIFIED [Concomitant]
     Dosage: UNK

REACTIONS (2)
  - DRY EYE [None]
  - REFRACTION DISORDER [None]
